FAERS Safety Report 7396679-5 (Version None)
Quarter: 2011Q2

REPORT INFORMATION
  Report Type: 
  Country: None (occurrence: None)
  Receive Date: 20110406
  Receipt Date: 20110328
  Transmission Date: 20111010
  Serious: Yes (Hospitalization)
  Sender: FDA-Public Use
  Company Number: BR-MEDIMMUNE-MEDI-0013022

PATIENT
  Sex: Female
  Weight: 8.5 kg

DRUGS (4)
  1. SYNAGIS [Suspect]
     Indication: BRONCHOPULMONARY DYSPLASIA
  2. PREDNISOLONE [Suspect]
     Indication: BRONCHIOLITIS
     Route: 048
     Dates: start: 20110323, end: 20110323
  3. SYNAGIS [Suspect]
  4. PREDNISOLONE [Suspect]
     Dates: start: 20100101, end: 20100901

REACTIONS (6)
  - INCREASED BRONCHIAL SECRETION [None]
  - WHEEZING [None]
  - FATIGUE [None]
  - COUGH [None]
  - PYREXIA [None]
  - BRONCHIOLITIS [None]
